FAERS Safety Report 10591775 (Version 3)
Quarter: 2015Q4

REPORT INFORMATION
  Report Type: Report from Study
  Country: AU (occurrence: AU)
  Receive Date: 20141118
  Receipt Date: 20151005
  Transmission Date: 20160304
  Serious: Yes (Hospitalization)
  Sender: FDA-Public Use
  Company Number: AU-ABBVIE-14P-008-1218849-00

PATIENT
  Age: 65 Year
  Sex: Male
  Weight: 50 kg

DRUGS (5)
  1. HUMIRA [Suspect]
     Active Substance: ADALIMUMAB
     Indication: ILEAL ULCER
  2. SYMBICORT [Concomitant]
     Active Substance: BUDESONIDE\FORMOTEROL FUMARATE DIHYDRATE
     Indication: PRODUCT USED FOR UNKNOWN INDICATION
  3. HUMIRA [Suspect]
     Active Substance: ADALIMUMAB
     Indication: ILEAL STENOSIS
  4. HUMIRA [Suspect]
     Active Substance: ADALIMUMAB
     Indication: CROHN^S DISEASE
     Route: 058
     Dates: start: 201209, end: 201310
  5. LIPITOR [Concomitant]
     Active Substance: ATORVASTATIN CALCIUM
     Indication: HYPERLIPIDAEMIA

REACTIONS (13)
  - Blood sodium decreased [Unknown]
  - Mean cell haemoglobin decreased [Unknown]
  - Blood albumin decreased [Unknown]
  - Blood urea decreased [Unknown]
  - Blood chloride decreased [Unknown]
  - Protein total decreased [Unknown]
  - Ileectomy [Recovered/Resolved]
  - Haematocrit decreased [Unknown]
  - Mean cell volume decreased [Unknown]
  - Red cell distribution width increased [Unknown]
  - Haemoglobin decreased [Unknown]
  - Red blood cell count decreased [Unknown]
  - Platelet count increased [Unknown]

NARRATIVE: CASE EVENT DATE: 20130607
